FAERS Safety Report 15402140 (Version 1)
Quarter: 2018Q3

REPORT INFORMATION
  Report Type: Spontaneous
  Country: US (occurrence: US)
  Receive Date: 20180915
  Receipt Date: 20180915
  Transmission Date: 20181010
  Serious: No
  Sender: FDA-Public Use
  Company Number: None

PATIENT
  Age: 48 Year
  Sex: Female
  Weight: 58.5 kg

DRUGS (5)
  1. KUSH MASCARA (CBD OIL) [Suspect]
     Active Substance: CANNABIDIOL
     Indication: PRODUCT USED FOR UNKNOWN INDICATION
     Dosage: ?          OTHER ROUTE:ON THE EYELASHES?
  2. MAPROTALINE [Concomitant]
  3. FISH OIL [Concomitant]
     Active Substance: FISH OIL
  4. LEXAPRO [Concomitant]
     Active Substance: ESCITALOPRAM OXALATE
  5. MULTI VITAMIN [Concomitant]
     Active Substance: VITAMINS

REACTIONS (9)
  - Hyperhidrosis [None]
  - Drug interaction [None]
  - Palpitations [None]
  - Fear [None]
  - Hunger [None]
  - Syncope [None]
  - Disorientation [None]
  - Dizziness [None]
  - Tremor [None]

NARRATIVE: CASE EVENT DATE: 20180914
